FAERS Safety Report 14343399 (Version 1)
Quarter: 2018Q1

REPORT INFORMATION
  Report Type: Spontaneous
  Country: MY (occurrence: MY)
  Receive Date: 20180102
  Receipt Date: 20180102
  Transmission Date: 20180509
  Serious: Yes (Disabling)
  Sender: FDA-Public Use
  Company Number: MY-BRISTOL-MYERS SQUIBB COMPANY-BMS-2017-119817

PATIENT
  Age: 48 Year
  Sex: Male

DRUGS (1)
  1. GLUCOPHAGE XR [Suspect]
     Active Substance: METFORMIN HYDROCHLORIDE
     Indication: DIABETES MELLITUS
     Dosage: 500 MG, QD
     Route: 048
     Dates: start: 20161112, end: 20161117

REACTIONS (2)
  - Abdominal pain [Recovered/Resolved with Sequelae]
  - Medication residue present [Recovered/Resolved with Sequelae]

NARRATIVE: CASE EVENT DATE: 20161112
